FAERS Safety Report 9001149 (Version 1)
Quarter: 2013Q1

REPORT INFORMATION
  Report Type: Report from Study
  Country: CA (occurrence: CA)
  Receive Date: 20130107
  Receipt Date: 20130107
  Transmission Date: 20140127
  Serious: Yes (Hospitalization)
  Sender: FDA-Public Use
  Company Number: CA-JNJFOC-20130100983

PATIENT
  Age: 66 None
  Sex: Female

DRUGS (4)
  1. REMICADE [Suspect]
     Indication: CROHN^S DISEASE
     Route: 042
     Dates: start: 201201
  2. REMICADE [Suspect]
     Indication: CROHN^S DISEASE
     Route: 042
     Dates: start: 201212
  3. REMICADE [Suspect]
     Indication: RHEUMATOID ARTHRITIS
     Route: 042
     Dates: start: 201201
  4. REMICADE [Suspect]
     Indication: RHEUMATOID ARTHRITIS
     Route: 042
     Dates: start: 201212

REACTIONS (8)
  - Abdominal pain [Unknown]
  - Intestinal obstruction [Unknown]
  - Dizziness [Unknown]
  - Malaise [Unknown]
  - Crohn^s disease [Unknown]
  - Gastrointestinal infection [Unknown]
  - Nasopharyngitis [Unknown]
  - Chest discomfort [Unknown]
